FAERS Safety Report 9826943 (Version 1)
Quarter: 2014Q1

REPORT INFORMATION
  Report Type: Spontaneous
  Country: US (occurrence: US)
  Receive Date: 20140117
  Receipt Date: 20140117
  Transmission Date: 20141002
  Serious: No
  Sender: FDA-Public Use
  Company Number: US-GLAXOSMITHKLINE-A1020404A

PATIENT
  Age: 86 Year
  Sex: Female

DRUGS (2)
  1. PROMACTA [Suspect]
     Indication: IMMUNE THROMBOCYTOPENIC PURPURA
     Dosage: 50MG PER DAY
     Route: 048
     Dates: start: 20130109, end: 201303
  2. NPLATE [Suspect]
     Indication: IMMUNE THROMBOCYTOPENIC PURPURA

REACTIONS (7)
  - Pain in extremity [Recovering/Resolving]
  - Headache [Recovering/Resolving]
  - Incontinence [Recovering/Resolving]
  - Fatigue [Recovering/Resolving]
  - Lethargy [Recovering/Resolving]
  - Lymphoedema [Recovering/Resolving]
  - Platelet count abnormal [Not Recovered/Not Resolved]
